FAERS Safety Report 12182749 (Version 1)
Quarter: 2016Q1

REPORT INFORMATION
  Report Type: Spontaneous
  Country: US (occurrence: US)
  Receive Date: 20160316
  Receipt Date: 20160316
  Transmission Date: 20160526
  Serious: No
  Sender: FDA-Public Use
  Company Number: US-009507513-1603USA003784

PATIENT
  Age: 73 Year
  Sex: Male

DRUGS (2)
  1. BEXAROTENE. [Concomitant]
     Active Substance: BEXAROTENE
     Dosage: UNK
  2. INTRON A [Suspect]
     Active Substance: INTERFERON ALFA-2B
     Dosage: 3 MILLION IU, 3 TIMES A WEEK
     Route: 058
     Dates: start: 201403

REACTIONS (1)
  - Fatigue [Not Recovered/Not Resolved]

NARRATIVE: CASE EVENT DATE: 20160304
